FAERS Safety Report 12323457 (Version 2)
Quarter: 2016Q3

REPORT INFORMATION
  Report Type: Spontaneous
  Country: AU (occurrence: AU)
  Receive Date: 20160502
  Receipt Date: 20160715
  Transmission Date: 20161109
  Serious: Yes (Other)
  Sender: FDA-Public Use
  Company Number: AU-JNJFOC-20160426109

PATIENT
  Sex: Female
  Weight: 97 kg

DRUGS (1)
  1. STELARA [Suspect]
     Active Substance: USTEKINUMAB
     Indication: PSORIASIS
     Route: 058
     Dates: start: 20140529

REACTIONS (1)
  - Vulvar dysplasia [Recovered/Resolved]

NARRATIVE: CASE EVENT DATE: 2016
